FAERS Safety Report 8450351-9 (Version None)
Quarter: 2012Q2

REPORT INFORMATION
  Report Type: 
  Country: None (occurrence: None)
  Receive Date: 20120620
  Receipt Date: 20120618
  Transmission Date: 20120825
  Serious: Yes (Death)
  Sender: FDA-Public Use
  Company Number: PHFR2012GB003544

PATIENT
  Age: 36 Year
  Sex: Male

DRUGS (2)
  1. CANNABIS [Concomitant]
  2. METHYLPHENIDATE [Suspect]
     Dosage: 10 MG, QID
     Route: 048
     Dates: start: 20120114

REACTIONS (1)
  - SUDDEN CARDIAC DEATH [None]
